FAERS Safety Report 9796053 (Version 2)
Quarter: 2014Q1

REPORT INFORMATION
  Report Type: Spontaneous
  Country: FR (occurrence: FR)
  Receive Date: 20140103
  Receipt Date: 20140115
  Transmission Date: 20141002
  Serious: Yes (Hospitalization)
  Sender: FDA-Public Use
  Company Number: FR-PFIZER INC-2013373531

PATIENT
  Age: 22 Year
  Sex: Female

DRUGS (5)
  1. ADEPAL [Suspect]
     Indication: CONTRACEPTION
     Dosage: 1 DF, 1X/DAY
     Route: 048
     Dates: start: 201303
  2. CLARITHROMYCIN [Suspect]
     Indication: PERTUSSIS
     Dosage: 1 G, 1X/DAY IN THE EVENING
     Route: 048
     Dates: start: 20130905, end: 20130909
  3. SOLUPRED [Suspect]
     Indication: PERTUSSIS
     Dosage: 20 MG, 2X/DAY
     Route: 048
     Dates: start: 20130905, end: 20130909
  4. PARACETAMOL [Suspect]
     Dosage: 500 MG, 2X/DAY
     Route: 048
     Dates: start: 20130909, end: 20130914
  5. NOROXIN [Concomitant]
     Indication: URINARY TRACT INFECTION
     Dosage: 400 MG, DAILY
     Dates: start: 20130912, end: 20130915

REACTIONS (1)
  - Hepatocellular injury [Recovering/Resolving]
